FAERS Safety Report 14526654 (Version 1)
Quarter: 2018Q1

REPORT INFORMATION
  Report Type: Spontaneous
  Country: US (occurrence: US)
  Receive Date: 20180213
  Receipt Date: 20180213
  Transmission Date: 20180509
  Serious: Yes (Hospitalization)
  Sender: FDA-Public Use
  Company Number: US-DSJP-DSU-2017-149027

PATIENT

DRUGS (1)
  1. BENICAR [Suspect]
     Active Substance: OLMESARTAN MEDOXOMIL
     Indication: HYPERTENSION
     Dosage: 5 MG, QD
     Route: 048
     Dates: start: 20110224, end: 20150402

REACTIONS (7)
  - Gastrooesophageal reflux disease [Unknown]
  - Gastroduodenitis [Unknown]
  - Oesophageal candidiasis [Unknown]
  - Hiatus hernia [Unknown]
  - Acquired oesophageal web [Unknown]
  - Colitis [Recovered/Resolved]
  - Gastrointestinal haemorrhage [Unknown]

NARRATIVE: CASE EVENT DATE: 20110224
